FAERS Safety Report 24346700 (Version 2)
Quarter: 2024Q3

REPORT INFORMATION
  Report Type: Spontaneous
  Country: FR (occurrence: FR)
  Receive Date: 20240921
  Receipt Date: 20240927
  Transmission Date: 20241017
  Serious: Yes (Other)
  Sender: CELLTRION
  Company Number: None

PATIENT

DRUGS (1)
  1. INFLIXIMAB [Suspect]
     Active Substance: INFLIXIMAB
     Indication: Crohn^s disease
     Dosage: 10 MG/KG
     Route: 042
     Dates: start: 20230425

REACTIONS (3)
  - Polyarthritis [Recovering/Resolving]
  - Serum sickness-like reaction [Unknown]
  - Overdose [Unknown]

NARRATIVE: CASE EVENT DATE: 20230502
